FAERS Safety Report 6466537-9 (Version None)
Quarter: 2009Q4

REPORT INFORMATION
  Report Type: 
  Country: None (occurrence: None)
  Receive Date: 20091202
  Receipt Date: 20091123
  Transmission Date: 20100525
  Serious: Yes (Hospitalization)
  Sender: FDA-Public Use
  Company Number: FR-ASTRAZENECA-2009SE26943

PATIENT
  Age: 8040 Day
  Sex: Male

DRUGS (5)
  1. SYMBICORT [Suspect]
     Dosage: 320/9 UG, TWO INHALATION
     Route: 055
  2. AIROMIR [Suspect]
     Route: 055
     Dates: end: 20090219
  3. CELESTENE [Suspect]
     Route: 048
     Dates: start: 20090219, end: 20090219
  4. AMOXICILLIN [Suspect]
     Route: 048
     Dates: start: 20090219, end: 20090220
  5. BIOCALYPTOL [Suspect]
     Route: 048
     Dates: start: 20090219, end: 20090220

REACTIONS (5)
  - BLOOD PHOSPHORUS DECREASED [None]
  - HYPERGLYCAEMIA [None]
  - HYPOKALAEMIA [None]
  - MYALGIA [None]
  - VOMITING [None]
